FAERS Safety Report 22185225 (Version 4)
Quarter: 2023Q2

REPORT INFORMATION
  Report Type: Spontaneous
  Country: US (occurrence: None)
  Receive Date: 20230407
  Receipt Date: 20230515
  Transmission Date: 20230721
  Serious: Yes (Other)
  Sender: FDA-Public Use
  Company Number: US-ROCHE-3324948

PATIENT

DRUGS (1)
  1. XOLAIR [Suspect]
     Active Substance: OMALIZUMAB
     Indication: Product used for unknown indication
     Route: 065
     Dates: start: 202108

REACTIONS (4)
  - Anaphylactic reaction [Unknown]
  - Therapeutic product effect decreased [Unknown]
  - Urticaria [Unknown]
  - Product complaint [Unknown]
